FAERS Safety Report 21377166 (Version 1)
Quarter: 2022Q3

REPORT INFORMATION
  Report Type: Spontaneous
  Country: US (occurrence: US)
  Receive Date: 20220926
  Receipt Date: 20220926
  Transmission Date: 20221026
  Serious: Yes (Hospitalization)
  Sender: FDA-Public Use
  Company Number: US-MYLANLABS-2022M1096786

PATIENT
  Age: 57 Year
  Sex: Female

DRUGS (2)
  1. CARBOPLATIN [Suspect]
     Active Substance: CARBOPLATIN
     Indication: Non-small cell lung cancer metastatic
     Dosage: UNK, CYCLE (FOUR CYCLES)
     Route: 065
  2. ALIMTA [Suspect]
     Active Substance: PEMETREXED DISODIUM
     Indication: Non-small cell lung cancer metastatic
     Dosage: UNK, CYCLE (FOUR CYCLES)
     Route: 065

REACTIONS (2)
  - Drug ineffective [Unknown]
  - Disease progression [Recovering/Resolving]
